FAERS Safety Report 9250254 (Version 1)
Quarter: 2013Q2

REPORT INFORMATION
  Report Type: Spontaneous
  Country: US (occurrence: US)
  Receive Date: 20130424
  Receipt Date: 20130424
  Transmission Date: 20140414
  Serious: Yes (Other)
  Sender: FDA-Public Use
  Company Number: US-ROCHE-1208616

PATIENT
  Age: 29 Year
  Sex: Female

DRUGS (9)
  1. PEGASYS [Suspect]
     Indication: HEPATITIS C
     Route: 058
     Dates: start: 20120822, end: 201301
  2. RIBAVIRIN [Suspect]
     Indication: HEPATITIS C
     Route: 048
     Dates: start: 20120822, end: 201301
  3. INCIVEK [Suspect]
     Indication: HEPATITIS C
     Route: 048
     Dates: start: 20120822
  4. CYMBALTA [Concomitant]
     Indication: DEPRESSION
     Route: 048
  5. WELLBUTRIN [Concomitant]
     Indication: DEPRESSION
     Route: 048
  6. DEPO-PROVERA [Concomitant]
  7. BIOTIN [Concomitant]
  8. B COMPLEX [Concomitant]
  9. LYSINE [Concomitant]

REACTIONS (3)
  - Stomatitis [Recovered/Resolved]
  - Pharyngeal ulceration [Unknown]
  - Alopecia [Not Recovered/Not Resolved]
